FAERS Safety Report 7806718-2 (Version None)
Quarter: 2011Q4

REPORT INFORMATION
  Report Type: 
  Country: None (occurrence: None)
  Receive Date: 20111011
  Receipt Date: 20111005
  Transmission Date: 20120403
  Serious: Yes (Death, Other)
  Sender: FDA-Public Use
  Company Number: PHHY2011TR85448

PATIENT
  Age: 89 Year
  Sex: Female

DRUGS (2)
  1. INSULIN [Concomitant]
  2. ZOLEDRONOC ACID [Suspect]
     Indication: OSTEOPOROSIS
     Dosage: UNK UKN, UNK
     Route: 042
     Dates: start: 20110919

REACTIONS (5)
  - DEATH [None]
  - HYPERTENSION [None]
  - NAUSEA [None]
  - VOMITING [None]
  - BLOOD GLUCOSE INCREASED [None]
